FAERS Safety Report 10062077 (Version 1)
Quarter: 2014Q1

REPORT INFORMATION
  Report Type: Spontaneous
  Country: US (occurrence: None)
  Receive Date: 20140312
  Receipt Date: 20140312
  Transmission Date: 20141002
  Serious: Yes (Other)
  Sender: FDA-Public Use
  Company Number: 1000041863

PATIENT
  Age: 48 Year
  Sex: Female

DRUGS (3)
  1. SAVELLA (MILMACIPRAN HYDROCHLORIDE) (TABLETS) [Suspect]
     Indication: FIBROMYALGIA
     Route: 048
     Dates: start: 2012
  2. SIMVASTATIN (SIMVASTATIN) (SIMVASTATIN) [Concomitant]
  3. OMEPRAZOLE (OMEPRAZOLE) (OMEPRAZOLE) [Concomitant]

REACTIONS (3)
  - Blood pressure increased [None]
  - Blood prolactin increased [None]
  - Feeling abnormal [None]
